FAERS Safety Report 6309141-5 (Version None)
Quarter: 2009Q3

REPORT INFORMATION
  Report Type: 
  Country: None (occurrence: None)
  Receive Date: 20090814
  Receipt Date: 20090601
  Transmission Date: 20100115
  Serious: No
  Sender: FDA-Public Use
  Company Number: A0780326A

PATIENT
  Age: 66 Year
  Sex: Male
  Weight: 95.5 kg

DRUGS (12)
  1. COREG CR [Suspect]
     Dosage: 80MG PER DAY
     Route: 048
     Dates: start: 20081008, end: 20090419
  2. VIAGRA [Concomitant]
     Indication: ERECTILE DYSFUNCTION
     Dosage: 100MG AS REQUIRED
     Route: 048
  3. GLUCOSAMINE [Concomitant]
     Dosage: 500MG TWICE PER DAY
     Route: 048
  4. LISINOPRIL [Concomitant]
     Dosage: 10MG PER DAY
     Route: 048
  5. SIMVASTATIN [Concomitant]
     Dosage: 20MG AT NIGHT
     Route: 048
  6. LASIX [Concomitant]
     Dosage: 20MG PER DAY
     Route: 048
  7. K-DUR [Concomitant]
     Dosage: 20MEQ PER DAY
     Route: 048
  8. MAGNESIUM [Concomitant]
     Dosage: 250MG PER DAY
     Route: 048
  9. MOBIC [Concomitant]
     Dosage: 7.5MG PER DAY
     Route: 048
  10. APPLE CIDER VINEGAR [Concomitant]
     Dosage: 1TAB PER DAY
     Route: 048
  11. FISH OIL [Concomitant]
     Dosage: 1000MG PER DAY
     Route: 048
  12. GARLIC OIL [Concomitant]
     Dosage: 1TAB PER DAY
     Route: 048

REACTIONS (1)
  - VISION BLURRED [None]
